FAERS Safety Report 17272023 (Version 4)
Quarter: 2020Q2

REPORT INFORMATION
  Report Type: Spontaneous
  Country: CO (occurrence: CO)
  Receive Date: 20200115
  Receipt Date: 20200508
  Transmission Date: 20200713
  Serious: Yes (Other)
  Sender: FDA-Public Use
  Company Number: NVSC2020CO007791

PATIENT
  Age: 40 Year
  Sex: Female

DRUGS (2)
  1. MEKINIST [Suspect]
     Active Substance: TRAMETINIB DIMETHYL SULFOXIDE
     Indication: MALIGNANT MELANOMA
     Dosage: UNK
     Route: 048
     Dates: end: 201907
  2. TAFINLAR [Suspect]
     Active Substance: DABRAFENIB MESYLATE
     Indication: MALIGNANT MELANOMA
     Dosage: UNK
     Route: 048
     Dates: end: 201907

REACTIONS (6)
  - Vitreous floaters [Unknown]
  - Serous retinal detachment [Unknown]
  - Blindness [Unknown]
  - Retinal depigmentation [Recovered/Resolved]
  - Ocular hyperaemia [Unknown]
  - Vogt-Koyanagi-Harada disease [Recovered/Resolved]

NARRATIVE: CASE EVENT DATE: 20190728
